FAERS Safety Report 4818626-X (Version None)
Quarter: 2005Q4

REPORT INFORMATION
  Report Type: 
  Country: None (occurrence: None)
  Receive Date: 20051101
  Receipt Date: 20051018
  Transmission Date: 20060501
  Serious: Yes (Other)
  Sender: FDA-Public Use
  Company Number: 21527

PATIENT
  Age: 61 Year
  Sex: Female

DRUGS (3)
  1. ADRIAMYCIN PFS [Suspect]
     Indication: OVARIAN CANCER METASTATIC
  2. BLEOMYCIN [Concomitant]
  3. STEROIDS [Concomitant]

REACTIONS (1)
  - CRYPTOGENIC ORGANIZING PNEUMONIA [None]
